FAERS Safety Report 13810169 (Version 1)
Quarter: 2017Q3

REPORT INFORMATION
  Report Type: Spontaneous
  Country: US (occurrence: US)
  Receive Date: 20170728
  Receipt Date: 20170728
  Transmission Date: 20171127
  Serious: Yes (Other)
  Sender: FDA-Public Use
  Company Number: US-GLAXOSMITHKLINE-US2017117203

PATIENT
  Age: 83 Year
  Sex: Male

DRUGS (12)
  1. GLIMEPIRIDE. [Concomitant]
     Active Substance: GLIMEPIRIDE
  2. MONTELUKAST [Concomitant]
     Active Substance: MONTELUKAST SODIUM
  3. ZYRTEC [Concomitant]
     Active Substance: CETIRIZINE HYDROCHLORIDE
  4. LISINOPRIL. [Concomitant]
     Active Substance: LISINOPRIL
  5. TUMERIC [Concomitant]
     Active Substance: HERBALS\TURMERIC
  6. ASPIRIN. [Concomitant]
     Active Substance: ASPIRIN
  7. PANTOPRAZOLE [Concomitant]
     Active Substance: PANTOPRAZOLE
  8. GABAPENTIN. [Concomitant]
     Active Substance: GABAPENTIN
  9. SIMVASTATIN. [Concomitant]
     Active Substance: SIMVASTATIN
  10. ANORO ELLIPTA [Suspect]
     Active Substance: UMECLIDINIUM BROMIDE\VILANTEROL TRIFENATATE
     Indication: CHRONIC OBSTRUCTIVE PULMONARY DISEASE
     Dosage: 1 PUFF(S), QD
     Route: 055
     Dates: start: 201507
  11. FLUTICASONE. [Concomitant]
     Active Substance: FLUTICASONE
  12. CINNAMON. [Concomitant]
     Active Substance: CINNAMON

REACTIONS (4)
  - Dysuria [Unknown]
  - Urinary hesitation [Unknown]
  - Urine flow decreased [Unknown]
  - Urinary retention [Not Recovered/Not Resolved]

NARRATIVE: CASE EVENT DATE: 201701
